FAERS Safety Report 18474144 (Version 4)
Quarter: 2021Q2

REPORT INFORMATION
  Report Type: Spontaneous
  Country: US (occurrence: US)
  Receive Date: 20201106
  Receipt Date: 20210617
  Transmission Date: 20210717
  Serious: Yes (Other)
  Sender: FDA-Public Use
  Company Number: US-PFIZER INC-2020414101

PATIENT
  Age: 79 Year
  Sex: Female
  Weight: 76.66 kg

DRUGS (6)
  1. LOSARTAN. [Concomitant]
     Active Substance: LOSARTAN
     Dosage: UNK
  2. SIMVASTATIN. [Concomitant]
     Active Substance: SIMVASTATIN
     Dosage: UNK
  3. PRISTIQ EXTENDED?RELEASE [Suspect]
     Active Substance: DESVENLAFAXINE SUCCINATE
     Dosage: 50 MG
  4. PRISTIQ EXTENDED?RELEASE [Suspect]
     Active Substance: DESVENLAFAXINE SUCCINATE
     Dosage: UNK
  5. PRISTIQ EXTENDED?RELEASE [Suspect]
     Active Substance: DESVENLAFAXINE SUCCINATE
     Dosage: 100 MG
  6. MEMANTINE. [Concomitant]
     Active Substance: MEMANTINE
     Dosage: UNK

REACTIONS (7)
  - Feeling abnormal [Unknown]
  - Memory impairment [Unknown]
  - Malaise [Unknown]
  - Drug dispensed to wrong patient [Unknown]
  - Dementia [Unknown]
  - Circumstance or information capable of leading to medication error [Unknown]
  - Dyskinesia [Unknown]
